FAERS Safety Report 13084685 (Version 1)
Quarter: 2017Q1

REPORT INFORMATION
  Report Type: Spontaneous
  Country: GB (occurrence: GB)
  Receive Date: 20170104
  Receipt Date: 20170104
  Transmission Date: 20170428
  Serious: Yes (Disabling, Other)
  Sender: FDA-Public Use
  Company Number: GB-TEVA-725145ACC

PATIENT
  Age: 73 Year
  Sex: Female
  Weight: 75 kg

DRUGS (6)
  1. GLUCOSAMINE WITH CHONDROITIN [Concomitant]
     Indication: ARTHROPATHY
     Dosage: ONGOING, HAVE BEEN TAKING FOR YEARS.
  2. FISH OIL [Concomitant]
     Active Substance: FISH OIL
     Indication: ARTHROPATHY
     Dosage: ONGOING, HAVE BEEN TAKING FOR YEARS
  3. GARLIC. [Concomitant]
     Active Substance: GARLIC
     Indication: ARTHROPATHY
     Dosage: ONGOING, HAVE BEEN TAKING FOR YEARS.
  4. INDAPAMIDE. [Suspect]
     Active Substance: INDAPAMIDE
     Indication: HYPERTENSION
     Dosage: .3333 DOSAGE FORMS DAILY;
     Dates: start: 201609, end: 20161125
  5. INDAPAMIDE. [Suspect]
     Active Substance: INDAPAMIDE
     Indication: HYPERTENSION
     Dosage: .3333 DOSAGE FORMS DAILY;
     Dates: start: 201609, end: 20161125
  6. INDAPAMIDE. [Suspect]
     Active Substance: INDAPAMIDE
     Indication: HYPERTENSION
     Dates: start: 20151226, end: 201609

REACTIONS (9)
  - Nightmare [Not Recovered/Not Resolved]
  - Dry mouth [Not Recovered/Not Resolved]
  - Pruritus [Not Recovered/Not Resolved]
  - Insomnia [Not Recovered/Not Resolved]
  - Muscular weakness [Not Recovered/Not Resolved]
  - Fatigue [Not Recovered/Not Resolved]
  - Arthritis [Not Recovered/Not Resolved]
  - Dry skin [Not Recovered/Not Resolved]
  - Dyspepsia [Not Recovered/Not Resolved]

NARRATIVE: CASE EVENT DATE: 201601
